FAERS Safety Report 7554038-6 (Version None)
Quarter: 2011Q2

REPORT INFORMATION
  Report Type: 
  Country: None (occurrence: None)
  Receive Date: 20110617
  Receipt Date: 20110607
  Transmission Date: 20111010
  Serious: Yes (Death, Life-Threatening, Hospitalization)
  Sender: FDA-Public Use
  Company Number: FR-EISAI INC-E3810-04740-SPO-FR

PATIENT
  Sex: Male
  Weight: 54 kg

DRUGS (17)
  1. RABEPRAZOLE SODIUM [Suspect]
     Route: 048
  2. CLONAZEPAM [Concomitant]
     Indication: CANCER PAIN
  3. LEVOTHYROXINE SODIUM [Concomitant]
     Dosage: 125 UG
  4. VENLAFAXINE [Concomitant]
  5. CYANOCOBALAMIN [Concomitant]
     Indication: PREMEDICATION
  6. FOLIC ACID [Concomitant]
     Indication: PREMEDICATION
  7. ACETYLSALICYLATE LYSINE [Concomitant]
  8. KETOPROFEN [Concomitant]
     Indication: CANCER PAIN
  9. ROSUVASTATIN CALCIUM [Concomitant]
  10. PEMETREXED [Suspect]
     Route: 041
     Dates: start: 20110117, end: 20110207
  11. RHAMNUS PURSHIANA DRY EXTRACT [Concomitant]
     Indication: GASTROINTESTINAL DISORDER
  12. TERBUTALINE SULFATE [Concomitant]
  13. FENTANYL CITRATE [Concomitant]
     Indication: CANCER PAIN
     Dosage: 50 UG/HR
     Route: 062
  14. FORLAX [Concomitant]
     Indication: GASTROINTESTINAL DISORDER
  15. OXALIPLATIN [Suspect]
     Route: 041
     Dates: start: 20110117, end: 20110207
  16. PREDNISONE [Concomitant]
     Indication: PREMEDICATION
  17. PREGABALIN [Concomitant]
     Indication: CANCER PAIN
     Route: 065

REACTIONS (1)
  - SEPTIC SHOCK [None]
